FAERS Safety Report 8775482 (Version 2)
Quarter: 2012Q4

REPORT INFORMATION
  Report Type: Report from Study
  Country: FR (occurrence: FR)
  Receive Date: 20120913
  Receipt Date: 20120925
  Transmission Date: 20130627
  Serious: Yes (Hospitalization)
  Sender: FDA-Public Use
  Company Number: FR-ROCHE-1112960

PATIENT
  Age: 74 Year
  Sex: Male
  Weight: 110 kg

DRUGS (6)
  1. VISMODEGIB [Suspect]
     Indication: HEAD AND NECK CANCER
     Dosage: date of last dose prior to SAE: 25/Jul/2012
     Route: 048
     Dates: start: 20120531
  2. PLAVIX [Concomitant]
     Route: 065
     Dates: start: 20120430
  3. KARDEGIC [Concomitant]
     Route: 065
     Dates: start: 20120430
  4. AMLOR [Concomitant]
     Route: 065
     Dates: start: 20120418
  5. DIAMICRON [Concomitant]
     Route: 065
     Dates: start: 20120418
  6. TAHOR [Concomitant]

REACTIONS (1)
  - Melaena [Recovered/Resolved]
